FAERS Safety Report 20397986 (Version 2)
Quarter: 2022Q1

REPORT INFORMATION
  Report Type: Spontaneous
  Country: US (occurrence: US)
  Receive Date: 20220131
  Receipt Date: 20220201
  Transmission Date: 20220423
  Serious: Yes (Hospitalization)
  Sender: FDA-Public Use
  Company Number: US-ABBVIE-21K-163-3807067-00

PATIENT
  Sex: Female

DRUGS (1)
  1. HUMIRA [Suspect]
     Active Substance: ADALIMUMAB
     Indication: Product used for unknown indication
     Route: 058

REACTIONS (7)
  - Dental operation [Unknown]
  - Post procedural sepsis [Unknown]
  - Mental fatigue [Unknown]
  - Immunosuppression [Unknown]
  - Agitation [Unknown]
  - Anxiety [Unknown]
  - Compulsive shopping [Unknown]
